FAERS Safety Report 21088006 (Version 1)
Quarter: 2022Q3

REPORT INFORMATION
  Report Type: Spontaneous
  Country: CN (occurrence: CN)
  Receive Date: 20220715
  Receipt Date: 20220715
  Transmission Date: 20221026
  Serious: Yes (Other)
  Sender: FDA-Public Use
  Company Number: None

PATIENT
  Age: 39 Year
  Sex: Female
  Weight: 56 kg

DRUGS (8)
  1. CYCLOPHOSPHAMIDE [Suspect]
     Active Substance: CYCLOPHOSPHAMIDE
     Indication: Breast cancer female
     Dosage: ENDOXAN (CTX) DILUTED WITH DILUENT SODIUM CHLORIDE (NS), 1-7 CHEMOTHERAPY CYCLES
     Route: 042
  2. CYCLOPHOSPHAMIDE [Suspect]
     Active Substance: CYCLOPHOSPHAMIDE
     Dosage: 8TH CHEMOTHERAPY, ENDOXAN (CTX) (900 MG) DILUTED WITH DILUENT SODIUM CHLORIDE (NS) (45ML)
     Route: 042
     Dates: start: 20220421, end: 20220421
  3. SODIUM CHLORIDE [Suspect]
     Active Substance: SODIUM CHLORIDE
     Indication: Medication dilution
     Dosage: ENDOXAN (CTX) DILUTED WITH DILUENT SODIUM CHLORIDE (NS), 1-7 CHEMOTHERAPY CYCLES
     Route: 042
  4. SODIUM CHLORIDE [Suspect]
     Active Substance: SODIUM CHLORIDE
     Dosage: ENDOXAN (CTX) (900 MG) DILUTED WITH DILUENT SODIUM CHLORIDE (NS) (45ML), 8TH CHEMOTHERAPY CYCLE
     Route: 042
     Dates: start: 20220421, end: 20220421
  5. SODIUM CHLORIDE [Suspect]
     Active Substance: SODIUM CHLORIDE
     Dosage: PHARMORUBICIN DILUTED WITH SODIUM CHLORIDE (NS), 1-7 CHEMOTHERAPY CYCLES
     Route: 041
  6. SODIUM CHLORIDE [Suspect]
     Active Substance: SODIUM CHLORIDE
     Dosage: PHARMORUBICIN (120 MG) DILUTED WITH SODIUM CHLORIDE (NS) (100 ML), 8TH CHEMOTHERAPY CYCLE
     Route: 041
     Dates: start: 20220421, end: 20220421
  7. EPIRUBICIN [Suspect]
     Active Substance: EPIRUBICIN
     Indication: Breast cancer female
     Dosage: PHARMORUBICINE DILUTED WITH DILUENT SODIUM CHLORIDE (NS), 1-7 CHEMOTHERAPY CYCLES.
     Route: 041
  8. EPIRUBICIN [Suspect]
     Active Substance: EPIRUBICIN
     Dosage: PHARMORUBICINE (120 MG) DILUTED WITH DILUENT SODIUM CHLORIDE (NS) (100 ML), 8TH CHEMOTHERAPY CYCLE
     Route: 041
     Dates: start: 20220421, end: 20220421

REACTIONS (2)
  - White blood cell count decreased [Recovered/Resolved]
  - Agranulocytosis [Recovered/Resolved]

NARRATIVE: CASE EVENT DATE: 20220509
